FAERS Safety Report 7983577-9 (Version None)
Quarter: 2011Q4

REPORT INFORMATION
  Report Type: 
  Country: None (occurrence: None)
  Receive Date: 20111215
  Receipt Date: 20111206
  Transmission Date: 20120403
  Serious: Yes (Other)
  Sender: FDA-Public Use
  Company Number: PHHY2011VN108552

PATIENT
  Sex: Female

DRUGS (4)
  1. ONDANSETRON [Concomitant]
     Indication: VOMITING
     Dosage: UNK UKN, UNK
     Dates: start: 20111114, end: 20111128
  2. TASIGNA [Suspect]
     Indication: CHRONIC MYELOID LEUKAEMIA
     Dosage: 800 MG DAILY
     Route: 048
     Dates: start: 20111114, end: 20111128
  3. TASIGNA [Suspect]
     Dosage: 400 MG IN THE MORNING
     Route: 048
     Dates: start: 20111205, end: 20111205
  4. MAGNE B6 [Concomitant]
     Dosage: UNK UKN, UNK
     Dates: start: 20111114, end: 20111128

REACTIONS (1)
  - RASH [None]
